FAERS Safety Report 10118435 (Version 2)
Quarter: 2014Q2

REPORT INFORMATION
  Report Type: Spontaneous
  Country: GB (occurrence: GB)
  Receive Date: 20140426
  Receipt Date: 20140508
  Transmission Date: 20141212
  Serious: Yes (Other)
  Sender: FDA-Public Use
  Company Number: GB-UCBSA-119045

PATIENT
  Age: 55 Year
  Sex: Female

DRUGS (7)
  1. KEPPRA [Suspect]
     Indication: EPILEPSY
     Dosage: DOSE UNKNOWN
     Route: 048
     Dates: start: 201401, end: 20140216
  2. CITALOPRAM [Suspect]
     Indication: DEPRESSION
     Route: 048
     Dates: start: 201303, end: 201402
  3. ZONISAMIDE [Suspect]
     Indication: EPILEPSY
     Route: 051
     Dates: start: 201401, end: 20140216
  4. OMEPRAZOLE [Concomitant]
     Dosage: DOSE UNKNOWN
  5. ASACOL MR [Concomitant]
     Dosage: DOSE UNKNOWN
  6. CLOBAZAM [Concomitant]
     Dosage: DOSE UNKNOWN
  7. TEGRETOL RETARD [Concomitant]
     Dosage: DOSE UNKNOWN

REACTIONS (4)
  - Suicidal ideation [Unknown]
  - Anxiety [Unknown]
  - Intentional self-injury [Unknown]
  - Convulsion [Unknown]
